FAERS Safety Report 9275380 (Version 1)
Quarter: 2013Q2

REPORT INFORMATION
  Report Type: Spontaneous
  Country: US (occurrence: US)
  Receive Date: 20130507
  Receipt Date: 20130507
  Transmission Date: 20140414
  Serious: No
  Sender: FDA-Public Use
  Company Number: US-PFIZER INC-2013137439

PATIENT
  Sex: Female

DRUGS (2)
  1. PREMARIN [Suspect]
     Dosage: 1.5 G, 1X/DAY
     Route: 067
  2. PREMARIN [Suspect]
     Dosage: 1 G, 1X/DAY
     Route: 067

REACTIONS (1)
  - Endometrial disorder [Unknown]
